FAERS Safety Report 9821576 (Version 1)
Quarter: 2014Q1

REPORT INFORMATION
  Report Type: Spontaneous
  Country: US (occurrence: US)
  Receive Date: 20140116
  Receipt Date: 20140116
  Transmission Date: 20141002
  Serious: Yes (Other)
  Sender: FDA-Public Use
  Company Number: US-BAYER-2014-005118

PATIENT
  Age: 38 Year
  Sex: Male
  Weight: 113.38 kg

DRUGS (2)
  1. ALKA-SELTZER PLUS SEVERE COUGH AND COLD DAY + NIGHT (DAY) [Suspect]
     Indication: NASOPHARYNGITIS
     Dosage: 2 DF, PRN
     Route: 048
     Dates: start: 201401, end: 20140108
  2. ALKA-SELTZER PLUS SEVERE COUGH AND COLD DAY + NIGHT [Suspect]
     Indication: NASOPHARYNGITIS
     Dosage: 2 DF, PRN
     Route: 048
     Dates: start: 201401, end: 20140108

REACTIONS (2)
  - Foreign body [Recovered/Resolved]
  - Dyspnoea [Recovered/Resolved]
